FAERS Safety Report 11514240 (Version 1)
Quarter: 2015Q3

REPORT INFORMATION
  Report Type: Spontaneous
  Country: US (occurrence: US)
  Receive Date: 20150903
  Receipt Date: 20150903
  Transmission Date: 20151125
  Serious: No
  Sender: FDA-Public Use
  Company Number: US-ELI_LILLY_AND_COMPANY-US201212007101

PATIENT
  Age: 35 Year
  Sex: Female

DRUGS (2)
  1. CYMBALTA [Suspect]
     Active Substance: DULOXETINE HYDROCHLORIDE
     Dosage: 60 MG, BID
  2. CYMBALTA [Suspect]
     Active Substance: DULOXETINE HYDROCHLORIDE
     Indication: DEPRESSION
     Dosage: 60 MG, QD

REACTIONS (8)
  - Speech disorder [Unknown]
  - Weight decreased [Unknown]
  - Abnormal behaviour [Unknown]
  - Sensitisation [Unknown]
  - Thinking abnormal [Unknown]
  - Drug ineffective [Unknown]
  - Decreased appetite [Unknown]
  - Skin wrinkling [Unknown]
